FAERS Safety Report 7313953-9 (Version None)
Quarter: 2011Q1

REPORT INFORMATION
  Report Type: 
  Country: None (occurrence: None)
  Receive Date: 20110225
  Receipt Date: 20110211
  Transmission Date: 20110831
  Serious: Yes (Hospitalization)
  Sender: FDA-Public Use
  Company Number: PHHO2010IE18890

PATIENT
  Sex: Female
  Weight: 94.9 kg

DRUGS (13)
  1. AFINITOR [Suspect]
     Indication: BREAST CANCER METASTATIC
     Dosage: UNK
     Route: 048
     Dates: start: 20101130, end: 20101211
  2. AFINITOR [Suspect]
     Dosage: UNK
     Route: 048
     Dates: start: 20101221
  3. COMPARATOR PACLITAXEL [Suspect]
     Indication: BREAST CANCER METASTATIC
     Dosage: 80 MG/M2 DAY 1,8,5 OF 28 DAY CYCLE
     Route: 042
     Dates: end: 20101214
  4. COMPARATOR TRASTUZUMAB [Suspect]
     Dosage: UNK
     Dates: start: 20101221
  5. PACLITAXEL [Suspect]
     Dosage: 60 MG, UNK
     Dates: start: 20101220
  6. AMITRIPTYLINE HCL [Concomitant]
  7. COMPARATOR PACLITAXEL [Suspect]
     Dosage: NO TREATMENT
     Dates: start: 20101215, end: 20101219
  8. ATECOR [Concomitant]
  9. FLUCONAZOLE [Concomitant]
     Indication: VULVOVAGINAL CANDIDIASIS
     Dosage: UNK
     Dates: start: 20101216, end: 20101220
  10. COMPARATOR TRASTUZUMAB [Suspect]
     Dosage: NO TREATMENT
     Dates: start: 20101215, end: 20101220
  11. CRESTOR [Concomitant]
  12. COMPARATOR TRASTUZUMAB [Suspect]
     Indication: BREAST CANCER METASTATIC
     Dosage: UNK
     Dates: end: 20101214
  13. NAPROXEN [Concomitant]

REACTIONS (1)
  - FEBRILE NEUTROPENIA [None]
